FAERS Safety Report 16367174 (Version 1)
Quarter: 2019Q2

REPORT INFORMATION
  Report Type: Spontaneous
  Country: DK (occurrence: DK)
  Receive Date: 20190529
  Receipt Date: 20190529
  Transmission Date: 20190711
  Serious: Yes (Other)
  Sender: FDA-Public Use
  Company Number: DK-MYLANLABS-2019M1050320

PATIENT
  Age: 20 Year
  Sex: Female

DRUGS (2)
  1. ZOLEDRONIC ACID MYLAN [Suspect]
     Active Substance: ZOLEDRONIC ACID
     Indication: MELORHEOSTOSIS
     Dosage: ADMINISTERED THREE TIMES WITHIN INTERVALS OF 10-12 MONTHS (SEPTEMBER 2013, JUNE 2014 AND JUNE 2015)
     Route: 042
  2. PARACETAMOL [Concomitant]
     Active Substance: ACETAMINOPHEN
     Indication: MELORHEOSTOSIS
     Dosage: ADMINISTERED DAILY
     Route: 065

REACTIONS (1)
  - Drug ineffective [Unknown]
